FAERS Safety Report 18888648 (Version 4)
Quarter: 2021Q4

REPORT INFORMATION
  Report Type: Spontaneous
  Country: JP (occurrence: JP)
  Receive Date: 20210213
  Receipt Date: 20211007
  Transmission Date: 20220303
  Serious: Yes (Death, Other)
  Sender: FDA-Public Use
  Company Number: JP-UNITED THERAPEUTICS-UNT-2021-002694

PATIENT
  Age: 38 Year
  Sex: Female
  Weight: 45.5 kg

DRUGS (9)
  1. REMODULIN [Suspect]
     Active Substance: TREPROSTINIL
     Indication: Portopulmonary hypertension
     Dosage: UNK, CONTINUING
     Route: 058
     Dates: start: 20201027
  2. REMODULIN [Suspect]
     Active Substance: TREPROSTINIL
     Dosage: 0.010 ?G/KG, CONTINUING
     Route: 058
     Dates: start: 20210108, end: 20210210
  3. ADCIRCA [Concomitant]
     Active Substance: TADALAFIL
     Indication: Product used for unknown indication
     Dosage: 20 MG, Q12H
     Route: 048
     Dates: start: 2017, end: 20210210
  4. OPSUMIT [Concomitant]
     Active Substance: MACITENTAN
     Indication: Product used for unknown indication
     Dosage: 5 MG, QD
     Route: 048
     Dates: start: 20200416, end: 20210210
  5. AZOSEMIDE [Concomitant]
     Active Substance: AZOSEMIDE
     Indication: Product used for unknown indication
     Dosage: 120 MG, QD
     Route: 048
     Dates: start: 2017, end: 20210210
  6. URSO [Concomitant]
     Active Substance: URSODIOL
     Indication: Product used for unknown indication
     Dosage: 100 MG, Q8H
     Route: 048
     Dates: start: 2010, end: 20210210
  7. SPIRONOLACTONE [Concomitant]
     Active Substance: SPIRONOLACTONE
     Indication: Product used for unknown indication
     Dosage: 100 MG, QD
     Route: 048
     Dates: start: 20200520, end: 20210210
  8. NEXIUM [Concomitant]
     Active Substance: ESOMEPRAZOLE MAGNESIUM
     Indication: Product used for unknown indication
     Dosage: 20 MG, QD
     Route: 048
     Dates: start: 2017, end: 20210210
  9. AMINO ACIDS, SOURCE UNSPECIFIED [Concomitant]
     Active Substance: AMINO ACIDS, SOURCE UNSPECIFIED
     Indication: Product used for unknown indication
     Dosage: 4.15 GRAM, Q8H
     Route: 048
     Dates: start: 2017, end: 20210210

REACTIONS (2)
  - Cardiac failure [Fatal]
  - Cholangitis [Unknown]

NARRATIVE: CASE EVENT DATE: 20201126
